FAERS Safety Report 25812851 (Version 3)
Quarter: 2025Q4

REPORT INFORMATION
  Report Type: Spontaneous
  Country: US (occurrence: US)
  Receive Date: 20250917
  Receipt Date: 20251209
  Transmission Date: 20260117
  Serious: No
  Sender: SANOFI AVENTIS
  Company Number: US-SA-2025SA276748

PATIENT
  Age: 72 Year
  Sex: Female

DRUGS (2)
  1. DUPIXENT [Suspect]
     Active Substance: DUPILUMAB
     Indication: Eczema
     Dosage: 600 MG, 1X
     Route: 058
     Dates: start: 20250717, end: 20250717
  2. DUPIXENT [Suspect]
     Active Substance: DUPILUMAB
     Dosage: 300 MG, QOW
     Route: 058
     Dates: start: 20250731, end: 202511

REACTIONS (6)
  - Swelling [Unknown]
  - Condition aggravated [Unknown]
  - Pruritus [Unknown]
  - Eczema [Unknown]
  - Drug ineffective [Unknown]
  - Rash [Unknown]

NARRATIVE: CASE EVENT DATE: 20250101
